FAERS Safety Report 14151124 (Version 2)
Quarter: 2020Q3

REPORT INFORMATION
  Report Type: Other
  Country: CA (occurrence: CA)
  Receive Date: 20171102
  Receipt Date: 20200720
  Transmission Date: 20201102
  Serious: Yes (Hospitalization, Other)
  Sender: FDA-Public Use
  Company Number: CA-APOTEX-2017AP020468

PATIENT
  Age: 28 Year
  Sex: Female

DRUGS (10)
  1. HYDROCORTISONE. [Suspect]
     Active Substance: HYDROCORTISONE
     Indication: PREMEDICATION
     Dosage: UNK
     Route: 065
  2. AZATHIOPRINE. [Suspect]
     Active Substance: AZATHIOPRINE
     Indication: PRODUCT USED FOR UNKNOWN INDICATION
     Dosage: 150 MILLIGRAM
     Route: 065
  3. BENADRYL [Suspect]
     Active Substance: DIPHENHYDRAMINE HYDROCHLORIDE
     Indication: PREMEDICATION
     Dosage: UNK
     Route: 065
  4. REMICADE [Suspect]
     Active Substance: INFLIXIMAB
     Indication: COLITIS ULCERATIVE
     Dosage: 800 MG, ONCE EVERY 8 WEEKS
     Route: 042
  5. DEBENDOX                           /00674201/ [Suspect]
     Active Substance: DOXYLAMINE SUCCINATE\PYRIDOXINE HYDROCHLORIDE
     Indication: PRODUCT USED FOR UNKNOWN INDICATION
     Dosage: UNK
     Route: 065
  6. GRAVOL [Suspect]
     Active Substance: DIMENHYDRINATE
     Indication: PREMEDICATION
     Dosage: UNK
     Route: 065
  7. ACETAMINOPHEN. [Suspect]
     Active Substance: ACETAMINOPHEN
     Indication: PREMEDICATION
     Dosage: UNK
     Route: 065
  8. AERIUS                             /01009701/ [Suspect]
     Active Substance: EBASTINE
     Indication: PREMEDICATION
     Dosage: UNK
     Route: 065
  9. IMURAN [Suspect]
     Active Substance: AZATHIOPRINE
     Indication: PRODUCT USED FOR UNKNOWN INDICATION
     Dosage: 150 MILLIGRAM
     Route: 065
  10. EBASTINE [Suspect]
     Active Substance: EBASTINE
     Indication: PREMEDICATION
     Dosage: UNK
     Route: 065

REACTIONS (7)
  - Fall [Recovered/Resolved]
  - Maternal exposure during pregnancy [Recovered/Resolved]
  - Diarrhoea [Recovered/Resolved]
  - Gestational hypertension [Recovered/Resolved]
  - Caesarean section [Recovered/Resolved]
  - Urinary tract infection [Recovered/Resolved]
  - Lower limb fracture [Recovered/Resolved]
